FAERS Safety Report 10063440 (Version 3)
Quarter: 2014Q2

REPORT INFORMATION
  Report Type: Spontaneous
  Country: US (occurrence: US)
  Receive Date: 20140407
  Receipt Date: 20140623
  Transmission Date: 20141212
  Serious: No
  Sender: FDA-Public Use
  Company Number: US-ENDO PHARMACEUTICALS INC.-OPCR20130263

PATIENT
  Age: 58 Year
  Sex: Female

DRUGS (2)
  1. OPANA ER 20MG [Suspect]
     Indication: PAIN
     Route: 048
  2. OPANA ER 20MG [Suspect]
     Route: 048
     Dates: start: 201212

REACTIONS (2)
  - No adverse event [Unknown]
  - Surgery [None]
